APPROVED DRUG PRODUCT: CERIANNA
Active Ingredient: FLUOROESTRADIOL F-18
Strength: 50ML (4-100mCi/ML)
Dosage Form/Route: SOLUTION;INTRAVENOUS
Application: N212155 | Product #001
Applicant: GE HEALTHCARE
Approved: May 20, 2020 | RLD: Yes | RS: Yes | Type: RX